FAERS Safety Report 6343797-6 (Version None)
Quarter: 2009Q3

REPORT INFORMATION
  Report Type: 
  Country: None (occurrence: None)
  Receive Date: 20090908
  Receipt Date: 20090828
  Transmission Date: 20100115
  Serious: Yes (Hospitalization)
  Sender: FDA-Public Use
  Company Number: B0591635A

PATIENT
  Age: 18 Month
  Sex: Female
  Weight: 8.2 kg

DRUGS (2)
  1. FLIXOTIDE [Suspect]
     Dosage: 50MG FOUR TIMES PER DAY
     Route: 055
  2. BETA-2 AGONIST [Concomitant]
     Route: 055

REACTIONS (19)
  - COUGH [None]
  - DYSPHAGIA [None]
  - FOOD AVERSION [None]
  - GASTRIC MUCOSAL HYPERTROPHY [None]
  - GASTROINTESTINAL ULCER [None]
  - HAEMATEMESIS [None]
  - INFLUENZA LIKE ILLNESS [None]
  - IRRITABILITY [None]
  - LYMPHATIC DISORDER [None]
  - MELAENA [None]
  - MUCOSAL HYPERAEMIA [None]
  - OESOPHAGEAL CANDIDIASIS [None]
  - OESOPHAGITIS [None]
  - ORAL CANDIDIASIS [None]
  - PYREXIA [None]
  - RHINORRHOEA [None]
  - UPPER GASTROINTESTINAL HAEMORRHAGE [None]
  - UPPER RESPIRATORY TRACT CONGESTION [None]
  - VOMITING [None]
